FAERS Safety Report 8458100-5 (Version None)
Quarter: 2012Q2

REPORT INFORMATION
  Report Type: 
  Country: None (occurrence: None)
  Receive Date: 20120622
  Receipt Date: 20120612
  Transmission Date: 20120825
  Serious: Yes (Other)
  Sender: FDA-Public Use
  Company Number: US-JNJFOC-20120514320

PATIENT
  Sex: Female
  Weight: 59.88 kg

DRUGS (11)
  1. NUVARING [Concomitant]
     Route: 065
     Dates: start: 20120515
  2. REMICADE [Suspect]
     Route: 042
     Dates: start: 20120508, end: 20120516
  3. PREDNISONE TAB [Suspect]
     Indication: COLITIS ULCERATIVE
     Route: 065
  4. PREDNISONE TAB [Suspect]
     Dosage: DOSE: 40 (UNITS UNSPECIFIED)
     Route: 065
     Dates: start: 20120515
  5. IMURAN [Concomitant]
     Indication: COLITIS ULCERATIVE
     Dosage: DOSE: 75/DAY^
     Route: 065
     Dates: start: 20120522
  6. PREDNISONE TAB [Suspect]
     Route: 065
     Dates: start: 20120424
  7. UNKNOWN MEDICATION [Concomitant]
     Indication: COLITIS ULCERATIVE
     Route: 065
     Dates: start: 20120424
  8. VICODIN [Concomitant]
     Route: 065
  9. IMURAN [Concomitant]
     Route: 065
  10. LAMISIL [Concomitant]
     Route: 065
     Dates: start: 20120515
  11. REMICADE [Suspect]
     Indication: COLITIS ULCERATIVE
     Dosage: DOSE 5 MG/KG
     Route: 042

REACTIONS (8)
  - THERAPEUTIC RESPONSE DELAYED [None]
  - FEELING ABNORMAL [None]
  - ADVERSE EVENT [None]
  - TRISMUS [None]
  - COLITIS ULCERATIVE [None]
  - SERUM SICKNESS [None]
  - HEADACHE [None]
  - MATERNAL EXPOSURE DURING PREGNANCY [None]
